FAERS Safety Report 23194664 (Version 1)
Quarter: 2023Q4

REPORT INFORMATION
  Report Type: Spontaneous
  Country: US (occurrence: US)
  Receive Date: 20231117
  Receipt Date: 20231117
  Transmission Date: 20240110
  Serious: Yes (Hospitalization, Other)
  Sender: FDA-Public Use
  Company Number: US-ROCHE-2575644

PATIENT
  Age: 59 Year
  Sex: Male

DRUGS (6)
  1. VALGANCICLOVIR [Suspect]
     Active Substance: VALGANCICLOVIR
     Indication: Cytomegalovirus infection
     Route: 048
     Dates: start: 20200318
  2. VALGANCICLOVIR [Suspect]
     Active Substance: VALGANCICLOVIR
     Indication: Lung transplant
     Route: 048
     Dates: start: 20200318
  3. VALGANCICLOVIR [Suspect]
     Active Substance: VALGANCICLOVIR
     Indication: Cytomegalovirus infection
     Dosage: BID
     Route: 048
  4. VALGANCICLOVIR [Suspect]
     Active Substance: VALGANCICLOVIR
     Indication: Lung transplant
     Dosage: BID
     Route: 048
  5. VALGANCICLOVIR [Suspect]
     Active Substance: VALGANCICLOVIR
     Indication: Cytomegalovirus infection
     Route: 048
  6. VALGANCICLOVIR [Suspect]
     Active Substance: VALGANCICLOVIR
     Indication: Lung transplant
     Route: 048

REACTIONS (20)
  - Off label use [Unknown]
  - Septic shock [Unknown]
  - Renal disorder [Unknown]
  - Secondary hypertension [Unknown]
  - Fall [Unknown]
  - Chronic kidney disease [Unknown]
  - Large intestine perforation [Unknown]
  - Post procedural haemorrhage [Unknown]
  - Duodenal ulcer [Unknown]
  - Oesophagitis [Unknown]
  - Gastrooesophageal reflux disease [Unknown]
  - Large intestine polyp [Unknown]
  - Pancreatitis acute [Unknown]
  - Abdominal pain lower [Unknown]
  - Obesity [Unknown]
  - Anaemia [Unknown]
  - Back pain [Unknown]
  - Renal failure [Unknown]
  - Vomiting [Unknown]
  - Hiccups [Unknown]

NARRATIVE: CASE EVENT DATE: 20200324
